FAERS Safety Report 5042944-6 (Version None)
Quarter: 2006Q2

REPORT INFORMATION
  Report Type: 
  Country: None (occurrence: None)
  Receive Date: 20060628
  Receipt Date: 20060608
  Transmission Date: 20061013
  Serious: Yes (Hospitalization, Other)
  Sender: FDA-Public Use
  Company Number: US200606002265

PATIENT
  Age: 61 Year
  Sex: Female

DRUGS (10)
  1. CYMBALTA [Suspect]
     Indication: POST-TRAUMATIC STRESS DISORDER
     Dosage: 30 MG, DAILY (1/D); SEE IMAGE
     Dates: start: 20041101, end: 20041201
  2. CYMBALTA [Suspect]
     Indication: POST-TRAUMATIC STRESS DISORDER
     Dosage: 30 MG, DAILY (1/D); SEE IMAGE
     Dates: start: 20041201
  3. NEURONTIN [Concomitant]
  4. PREDNISONE TAB [Concomitant]
  5. ZINC (ZINC) [Concomitant]
  6. ASCORBIC ACID [Concomitant]
  7. PLAQUENIL [Concomitant]
  8. OXYCONTIN [Concomitant]
  9. VALIUM /NET/ (DIAZEPAM) [Concomitant]
  10. VICODIN [Concomitant]

REACTIONS (11)
  - ABDOMINAL PAIN UPPER [None]
  - AGITATION [None]
  - ANXIETY [None]
  - DIZZINESS [None]
  - FALL [None]
  - INSOMNIA [None]
  - LOSS OF CONSCIOUSNESS [None]
  - PARAESTHESIA [None]
  - SOMNOLENCE [None]
  - THERMAL BURN [None]
  - VOMITING [None]
